FAERS Safety Report 20180135 (Version 1)
Quarter: 2021Q4

REPORT INFORMATION
  Report Type: Spontaneous
  Country: US (occurrence: None)
  Receive Date: 20211213
  Receipt Date: 20211213
  Transmission Date: 20220303
  Serious: No
  Sender: FDA-Public Use
  Company Number: None

PATIENT
  Sex: Female

DRUGS (1)
  1. CEFTRIAXONE SODIUM [Suspect]
     Active Substance: CEFTRIAXONE SODIUM
     Indication: Infection
     Dosage: OTHER QUANTITY : 2 GM ;?FREQUENCY : DAILY;?
     Route: 042
     Dates: start: 20211025, end: 20211210

REACTIONS (4)
  - Pharyngeal paraesthesia [None]
  - Throat irritation [None]
  - Lip pruritus [None]
  - Infusion related reaction [None]
